FAERS Safety Report 4837428-1 (Version None)
Quarter: 2005Q4

REPORT INFORMATION
  Report Type: 
  Country: None (occurrence: None)
  Receive Date: 20051123
  Receipt Date: 20051123
  Transmission Date: 20060501
  Serious: No
  Sender: FDA-Public Use
  Company Number: None

PATIENT
  Age: 58 Year
  Sex: Male
  Weight: 105.5 kg

DRUGS (22)
  1. LISINOPRIL [Suspect]
     Indication: HYPERTENSION
     Dosage: 20 MG , 20 MG QD , ORAL
     Route: 048
  2. FELODIPINE [Concomitant]
  3. CLOPIDOGREL BISULFATE [Concomitant]
  4. ASPIRIN [Concomitant]
  5. RISPERIDONE [Concomitant]
  6. TRAZODONE HCL [Concomitant]
  7. METOPROLOL TARTRATE [Concomitant]
  8. ... [Concomitant]
  9. SIMVASTATIN [Concomitant]
  10. CITALOPRAM HYDROBROMIDE [Concomitant]
  11. HYDROCODONE 5/ ACETAMINOPHEN [Concomitant]
  12. LORATADINE [Concomitant]
  13. RANITIDINE HCL [Concomitant]
  14. GATIFLOXACIN [Concomitant]
  15. IBUPROFEN [Concomitant]
  16. ABSORBASE [Concomitant]
  17. SULFAMETHOXAZOLE AND TRIMETHOPRIM DOUBLE STRENGTH [Concomitant]
  18. ALBUTEROL SULFATE AND IPRATROPIUM BROMIDE [Concomitant]
  19. DOCUSATE NA [Concomitant]
  20. DIVALPROEX EC [Concomitant]
  21. RISPERIDONE [Concomitant]
  22. SILDENAFIL CITRATE [Concomitant]

REACTIONS (4)
  - INCORRECT DOSE ADMINISTERED [None]
  - MEDICATION ERROR [None]
  - SIMILAR REACTION ON PREVIOUS EXPOSURE TO DRUG [None]
  - SWELLING FACE [None]
